FAERS Safety Report 9494989 (Version 1)
Quarter: 2013Q3

REPORT INFORMATION
  Report Type: Spontaneous
  Country: US (occurrence: US)
  Receive Date: 20130903
  Receipt Date: 20130903
  Transmission Date: 20140515
  Serious: No
  Sender: FDA-Public Use
  Company Number: US-TEVA-426973USA

PATIENT
  Age: 24 Year
  Sex: Female
  Weight: 55.39 kg

DRUGS (2)
  1. PARAGARD 380A [Suspect]
     Indication: CONTRACEPTION
     Route: 015
     Dates: start: 20130718, end: 20130815
  2. LEXAPRO [Concomitant]
     Dosage: 10 MILLIGRAM DAILY;
     Route: 048

REACTIONS (2)
  - Abdominal pain [Unknown]
  - Device expulsion [Recovered/Resolved]
